FAERS Safety Report 21210206 (Version 2)
Quarter: 2022Q3

REPORT INFORMATION
  Report Type: Spontaneous
  Country: DE (occurrence: DE)
  Receive Date: 20220814
  Receipt Date: 20220826
  Transmission Date: 20221027
  Serious: Yes (Other)
  Sender: FDA-Public Use
  Company Number: DE-ANIPHARMA-2022-DE-000109

PATIENT
  Age: 24 Year
  Sex: Female

DRUGS (11)
  1. CANDESARTAN CILEXETIL [Suspect]
     Active Substance: CANDESARTAN CILEXETIL
     Indication: Product used for unknown indication
     Dosage: 16 MG DAILY
     Route: 048
     Dates: start: 20220722, end: 20220722
  2. CHOLECALCIFEROL [Suspect]
     Active Substance: CHOLECALCIFEROL
     Dosage: 25 DF DAILY
     Route: 048
     Dates: start: 20220722, end: 20220722
  3. PREDNISOLONE [Suspect]
     Active Substance: PREDNISOLONE
     Route: 048
     Dates: start: 20220722, end: 20220722
  4. SPIRONOLACTONE [Suspect]
     Active Substance: SPIRONOLACTONE
     Dosage: 10 DF DAILY
     Route: 048
     Dates: start: 20220722, end: 20220722
  5. TORSEMIDE [Suspect]
     Active Substance: TORSEMIDE
     Dosage: 7 DF DAILY
     Route: 048
     Dates: start: 20220722, end: 20220722
  6. BISOPROLOL [Suspect]
     Active Substance: BISOPROLOL
     Dosage: 5 MG DAILY
     Route: 048
     Dates: start: 20220722, end: 20220722
  7. METFORMIN [Suspect]
     Active Substance: METFORMIN HYDROCHLORIDE
     Dosage: 20 DF DAILY
     Route: 048
     Dates: start: 20220722, end: 20220722
  8. ACETAMINOPHEN\TRAMADOL HYDROCHLORIDE [Suspect]
     Active Substance: ACETAMINOPHEN\TRAMADOL HYDROCHLORIDE
     Dosage: 10 DF DAILY
     Route: 048
  9. CHOLECALCIFEROL [Suspect]
     Active Substance: CHOLECALCIFEROL
     Dosage: 24 DF DAILY
     Route: 048
     Dates: start: 20220722, end: 20220722
  10. TORSEMIDE [Suspect]
     Active Substance: TORSEMIDE
     Route: 048
     Dates: start: 20220722, end: 20220722
  11. TRAMADOL [Suspect]
     Active Substance: TRAMADOL
     Route: 048
     Dates: start: 20220722, end: 20220722

REACTIONS (3)
  - Suicide attempt [Recovering/Resolving]
  - Vomiting [Recovering/Resolving]
  - Intentional overdose [Unknown]

NARRATIVE: CASE EVENT DATE: 20220701
